FAERS Safety Report 7379037-9 (Version None)
Quarter: 2011Q1

REPORT INFORMATION
  Report Type: 
  Country: None (occurrence: None)
  Receive Date: 20110328
  Receipt Date: 20110315
  Transmission Date: 20110831
  Serious: Yes (Other)
  Sender: FDA-Public Use
  Company Number: US-ELI_LILLY_AND_COMPANY-US201103005150

PATIENT
  Sex: Male

DRUGS (2)
  1. STRATTERA [Suspect]
     Dosage: 10 MG, UNK
     Dates: start: 20101220, end: 20110101
  2. STRATTERA [Suspect]
     Dosage: 18 MG, UNK
     Dates: start: 20110102

REACTIONS (4)
  - CONVULSION [None]
  - LUNG NEOPLASM [None]
  - CEREBROVASCULAR ACCIDENT [None]
  - BRAIN NEOPLASM [None]
